FAERS Safety Report 16662393 (Version 1)
Quarter: 2019Q3

REPORT INFORMATION
  Report Type: Report from Study
  Country: AU (occurrence: AU)
  Receive Date: 20190802
  Receipt Date: 20190802
  Transmission Date: 20191004
  Serious: No
  Sender: FDA-Public Use
  Company Number: AU-EXELIXIS-CABO-19019272

PATIENT
  Sex: Male

DRUGS (3)
  1. CABOMETYX [Suspect]
     Active Substance: CABOZANTINIB S-MALATE
     Dosage: 60 MG, QOD
     Dates: start: 2019
  2. SOMATULINE [Concomitant]
     Active Substance: LANREOTIDE ACETATE
  3. CABOMETYX [Suspect]
     Active Substance: CABOZANTINIB S-MALATE
     Indication: HEPATOCELLULAR CARCINOMA
     Dosage: 60 MG, QD
     Dates: start: 2019, end: 2019

REACTIONS (4)
  - Fatigue [Unknown]
  - Asthenia [Unknown]
  - Dysgeusia [Unknown]
  - Constipation [Unknown]

NARRATIVE: CASE EVENT DATE: 2019
